FAERS Safety Report 5837226-6 (Version None)
Quarter: 2008Q3

REPORT INFORMATION
  Report Type: 
  Country: None (occurrence: None)
  Receive Date: 20080807
  Receipt Date: 20080723
  Transmission Date: 20090109
  Serious: Yes (Other)
  Sender: FDA-Public Use
  Company Number: JP-GENENTECH-265145

PATIENT
  Sex: Female

DRUGS (4)
  1. AVASTIN [Suspect]
     Indication: COLON CANCER
     Dosage: 224 MG, Q2W
     Route: 041
     Dates: start: 20080708
  2. OXALIPLATIN [Concomitant]
     Indication: COLON CANCER
  3. FLUOROURACIL [Concomitant]
     Indication: COLON CANCER
  4. LEUCOVORIN CALCIUM [Concomitant]
     Indication: COLON CANCER

REACTIONS (2)
  - HOT FLUSH [None]
  - PYREXIA [None]
